FAERS Safety Report 24449875 (Version 1)
Quarter: 2024Q4

REPORT INFORMATION
  Report Type: Spontaneous
  Country: US (occurrence: US)
  Receive Date: 20241017
  Receipt Date: 20241017
  Transmission Date: 20250115
  Serious: Yes (Death)
  Sender: MYLAN
  Company Number: US-MYLANLABS-2024M1093165

PATIENT
  Age: 64 Year
  Sex: Male

DRUGS (2)
  1. DEXAMETHASONE [Suspect]
     Active Substance: DEXAMETHASONE
     Indication: Immune effector cell-associated neurotoxicity syndrome
     Dosage: UNK
     Route: 065
  2. ANAKINRA [Suspect]
     Active Substance: ANAKINRA
     Indication: Immune effector cell-associated neurotoxicity syndrome
     Dosage: UNK
     Route: 065

REACTIONS (1)
  - Drug ineffective [Fatal]
